FAERS Safety Report 4883276-6 (Version None)
Quarter: 2006Q1

REPORT INFORMATION
  Report Type: 
  Country: None (occurrence: None)
  Receive Date: 20060117
  Receipt Date: 20060117
  Transmission Date: 20060701
  Serious: Yes (Hospitalization)
  Sender: FDA-Public Use
  Company Number: None

PATIENT
  Age: 55 Year
  Sex: Male
  Weight: 66.5 kg

DRUGS (1)
  1. GATIFLOXACIN [Suspect]
     Indication: EPIDIDYMITIS
     Dosage: 200MG QD PO   4 DAYS, INTENDED FOR 14 D
     Route: 048

REACTIONS (5)
  - DRUG HYPERSENSITIVITY [None]
  - ELECTROCARDIOGRAM QT CORRECTED INTERVAL PROLONGED [None]
  - HYPOGLYCAEMIA [None]
  - ORAL INTAKE REDUCED [None]
  - RENAL FAILURE [None]
